FAERS Safety Report 5948495-6 (Version None)
Quarter: 2008Q4

REPORT INFORMATION
  Report Type: 
  Country: None (occurrence: None)
  Receive Date: 20081111
  Receipt Date: 20081104
  Transmission Date: 20090506
  Serious: Yes (Hospitalization)
  Sender: FDA-Public Use
  Company Number: B0541360A

PATIENT
  Age: 48 Year
  Sex: Female

DRUGS (6)
  1. SERETIDE [Suspect]
     Indication: DRUG USE FOR UNKNOWN INDICATION
     Route: 055
  2. ZOLPIDEM [Concomitant]
     Route: 048
  3. PERINDOPRIL [Concomitant]
     Dosage: 8MG PER DAY
     Route: 048
  4. MICARDIS [Concomitant]
     Dosage: 80MG PER DAY
     Route: 048
  5. CARBASALAAT CALCIUM [Concomitant]
     Dosage: 100MG PER DAY
     Route: 048
  6. AMLODIPINE [Concomitant]
     Dosage: 5MG PER DAY
     Route: 048

REACTIONS (5)
  - CHEST PAIN [None]
  - DYSPNOEA [None]
  - EXPIRED DRUG ADMINISTERED [None]
  - MALAISE [None]
  - TACHYCARDIA [None]
